FAERS Safety Report 18777393 (Version 2)
Quarter: 2021Q2

REPORT INFORMATION
  Report Type: Spontaneous
  Country: US (occurrence: US)
  Receive Date: 20210122
  Receipt Date: 20210416
  Transmission Date: 20210717
  Serious: Yes (Hospitalization)
  Sender: FDA-Public Use
  Company Number: US-TEVA-2021-US-1869831

PATIENT
  Age: 29 Year
  Sex: Male

DRUGS (5)
  1. VORICONAZOLE. [Suspect]
     Active Substance: VORICONAZOLE
     Indication: ASPERGILLOMA
     Route: 065
  2. AMPHOTERICIN?B [Suspect]
     Active Substance: AMPHOTERICIN B
     Indication: ASPERGILLOMA
     Route: 065
  3. POTASSIUM [Suspect]
     Active Substance: POTASSIUM
     Indication: HYPOKALAEMIA
     Dosage: APPROXIMATELY 200MEQ/DAY
     Route: 042
  4. POTASSIUM CHLORIDE. [Suspect]
     Active Substance: POTASSIUM CHLORIDE
     Indication: HYPOKALAEMIA
     Dosage: 40?100MEQ
     Route: 048
  5. MICAFUNGIN. [Suspect]
     Active Substance: MICAFUNGIN SODIUM
     Indication: ASPERGILLOMA
     Route: 065

REACTIONS (5)
  - Drug ineffective [Unknown]
  - Renal tubular disorder [Unknown]
  - Electrocardiogram U wave present [Unknown]
  - Hypokalaemia [Recovered/Resolved]
  - Polyuria [Unknown]
